FAERS Safety Report 5753386-X (Version None)
Quarter: 2008Q2

REPORT INFORMATION
  Report Type: 
  Country: None (occurrence: None)
  Receive Date: 20080527
  Receipt Date: 20080512
  Transmission Date: 20081010
  Serious: Yes (Other)
  Sender: FDA-Public Use
  Company Number: 100#03#2008-02646

PATIENT
  Age: 31 Year
  Sex: Female

DRUGS (2)
  1. SERTRALINE [Suspect]
     Indication: ANXIETY
     Dosage: 75 MG ONCE DAILY
  2. SERTRALINE [Suspect]
     Indication: DRUG EXPOSURE DURING PREGNANCY
     Dosage: 75 MG ONCE DAILY

REACTIONS (2)
  - ABORTION SPONTANEOUS [None]
  - DRUG EXPOSURE DURING PREGNANCY [None]
